FAERS Safety Report 25910476 (Version 2)
Quarter: 2025Q4

REPORT INFORMATION
  Report Type: Spontaneous
  Country: CA (occurrence: CA)
  Receive Date: 20251012
  Receipt Date: 20251013
  Transmission Date: 20260117
  Serious: Yes (Hospitalization, Other)
  Sender: SANDOZ
  Company Number: CA-SANDOZ-SDZ2025CA072054

PATIENT
  Age: 16 Year
  Sex: Male

DRUGS (3)
  1. RISPERIDONE [Suspect]
     Active Substance: RISPERIDONE
     Indication: Catatonia
     Dosage: 0.5 MG WAS ATTEMPTED AT DAY 34
     Route: 065
  2. CLONAZEPAM [Concomitant]
     Active Substance: CLONAZEPAM
     Indication: Product used for unknown indication
     Dosage: UNK
     Route: 065
  3. OLANZAPINE [Concomitant]
     Active Substance: OLANZAPINE
     Indication: Psychotic disorder
     Dosage: UNK
     Route: 065

REACTIONS (7)
  - Catatonia [Unknown]
  - Condition aggravated [Unknown]
  - Irritability [Unknown]
  - Eye disorder [Unknown]
  - Tremor [Unknown]
  - Product use issue [Unknown]
  - Product use in unapproved indication [Unknown]
